FAERS Safety Report 8236309-3 (Version None)
Quarter: 2012Q1

REPORT INFORMATION
  Report Type: 
  Country: None (occurrence: None)
  Receive Date: 20120327
  Receipt Date: 20120319
  Transmission Date: 20120608
  Serious: Yes (Hospitalization)
  Sender: FDA-Public Use
  Company Number: US-BAYER-2011-105766

PATIENT
  Age: 27 Year
  Sex: Female
  Weight: 86 kg

DRUGS (5)
  1. NEXIUM [Concomitant]
     Dosage: UNK
     Dates: start: 20081001
  2. YAZ [Suspect]
     Dosage: UNK
     Dates: start: 20080201, end: 20090101
  3. BELLADONNA W/ERGOTAMINE/PHENOBARBITAL [Concomitant]
     Dosage: UNK
     Dates: start: 20081001
  4. MAGNESIUM HYDROXIDE TAB [Concomitant]
     Dosage: UNK
     Dates: start: 20081001
  5. KETOLORAC [Concomitant]
     Dosage: UNK UNK, PRN
     Dates: start: 20081001

REACTIONS (7)
  - PAIN [None]
  - FATIGUE [None]
  - MALAISE [None]
  - DECREASED APPETITE [None]
  - FEAR [None]
  - INJURY [None]
  - GALLBLADDER INJURY [None]
